FAERS Safety Report 6156503-5 (Version None)
Quarter: 2009Q2

REPORT INFORMATION
  Report Type: 
  Country: None (occurrence: None)
  Receive Date: 20090413
  Receipt Date: 20080909
  Transmission Date: 20091009
  Serious: Yes (Other)
  Sender: FDA-Public Use
  Company Number: OPER20080181

PATIENT
  Sex: Female

DRUGS (3)
  1. OPANA ER [Suspect]
  2. SEROQUEL [Suspect]
  3. SUBOXONE [Concomitant]

REACTIONS (1)
  - DRUG DEPENDENCE [None]
